FAERS Safety Report 20998134 (Version 1)
Quarter: 2022Q2

REPORT INFORMATION
  Report Type: Spontaneous
  Country: US (occurrence: US)
  Receive Date: 20220623
  Receipt Date: 20220623
  Transmission Date: 20220720
  Serious: No
  Sender: FDA-Public Use
  Company Number: US-BioDelivery Sciences International-2022BDSI0110

PATIENT
  Age: 72 Year
  Sex: Male

DRUGS (2)
  1. BELBUCA [Suspect]
     Active Substance: BUPRENORPHINE HYDROCHLORIDE
     Indication: Pain
     Dosage: UNKNOWN
     Route: 002
     Dates: start: 202203
  2. BELBUCA [Suspect]
     Active Substance: BUPRENORPHINE HYDROCHLORIDE
     Route: 002
     Dates: start: 20220326

REACTIONS (6)
  - Therapeutic response decreased [Unknown]
  - Product prescribing error [Unknown]
  - Product adhesion issue [Unknown]
  - Oral administration complication [Unknown]
  - Product solubility abnormal [Unknown]
  - Product physical consistency issue [Unknown]

NARRATIVE: CASE EVENT DATE: 20220301
